FAERS Safety Report 6382671-6 (Version None)
Quarter: 2009Q3

REPORT INFORMATION
  Report Type: 
  Country: None (occurrence: None)
  Receive Date: 20090928
  Receipt Date: 20090928
  Transmission Date: 20100115
  Serious: Yes (Other)
  Sender: FDA-Public Use
  Company Number: None

PATIENT
  Age: 63 Year
  Sex: Female

DRUGS (1)
  1. GLUCOVANCE [Suspect]
     Indication: DIABETES MELLITUS
     Dosage: 1 TABLET TWICE DAILY PO
     Route: 048
     Dates: start: 20090828, end: 20090910

REACTIONS (2)
  - DIABETES MELLITUS INADEQUATE CONTROL [None]
  - PRODUCT SUBSTITUTION ISSUE [None]
